FAERS Safety Report 9929066 (Version 1)
Quarter: 2014Q1

REPORT INFORMATION
  Report Type: Spontaneous
  Country: GB (occurrence: None)
  Receive Date: 20140225
  Receipt Date: 20140225
  Transmission Date: 20141002
  Serious: Yes (Disabling)
  Sender: FDA-Public Use
  Company Number: 2014-000455

PATIENT
  Age: 52 Year
  Sex: Female
  Weight: 76 kg

DRUGS (2)
  1. DORYX [Suspect]
     Dosage: UNK,UNK, UNKOWN
     Dates: start: 20140131
  2. NAPROXEN (NAPROXEN) [Concomitant]

REACTIONS (3)
  - IIIrd nerve injury [None]
  - VIth nerve paralysis [None]
  - Diplopia [None]
